FAERS Safety Report 10228735 (Version 1)
Quarter: 2014Q2

REPORT INFORMATION
  Report Type: Spontaneous
  Country: JP (occurrence: JP)
  Receive Date: 20140610
  Receipt Date: 20140610
  Transmission Date: 20141212
  Serious: Yes (Death)
  Sender: FDA-Public Use
  Company Number: JP-WATSON-2014-11775

PATIENT
  Age: 83 Year
  Sex: Male

DRUGS (5)
  1. CYCLOPHOSPHAMIDE (UNKNOWN) [Suspect]
     Indication: B-CELL LYMPHOMA
     Dosage: UNKNOWN
     Route: 065
  2. DOXORUBICIN (UNKNOWN) [Suspect]
     Indication: B-CELL LYMPHOMA
     Dosage: UNKNOWN
     Route: 065
  3. VINCRISTINE (UNKNOWN) [Suspect]
     Indication: B-CELL LYMPHOMA
     Dosage: UNKNOWN
     Route: 065
  4. PREDNISOLONE (UNKNOWN) [Suspect]
     Indication: B-CELL LYMPHOMA
     Dosage: UNKNOWN
     Route: 065
  5. RITUXIMAB [Suspect]
     Indication: B-CELL LYMPHOMA
     Dosage: UNKNOWN
     Route: 065

REACTIONS (3)
  - Tumour lysis syndrome [Fatal]
  - Renal failure [Fatal]
  - Pulmonary oedema [Fatal]
